FAERS Safety Report 10457098 (Version 1)
Quarter: 2014Q3

REPORT INFORMATION
  Report Type: Spontaneous
  Country: JP (occurrence: None)
  Receive Date: 20140912
  Receipt Date: 20140912
  Transmission Date: 20150326
  Serious: Yes (Hospitalization)
  Sender: FDA-Public Use
  Company Number: 2014JP000570

PATIENT
  Age: 58 Year
  Sex: Female

DRUGS (19)
  1. BASEN (VOGLIBOSE) [Concomitant]
  2. TRAMCET (PARACETAMOL, TRAMADIL HYDROCHLORIDE) [Concomitant]
  3. FERRIC CITRATE COORDINATION COMPLEX [Suspect]
     Active Substance: TETRAFERRIC TRICITRATE DECAHYDRATE
     Route: 048
     Dates: start: 20140522, end: 20140523
  4. EURODIN (ESTAZOLAM) [Concomitant]
  5. PLAVIX (CLOPIDOGREL BISULFATE) [Concomitant]
  6. SIGMART (NICORANDIL) [Concomitant]
     Active Substance: NICORANDIL
  7. ULCERMIN (SUCRALFATE) [Concomitant]
  8. JUVELA N (TOCOPHERYL NICOTINATE) [Concomitant]
  9. PREDONINE (PREDNISOLONE ACETATE) [Concomitant]
  10. PREDNISOLONE. [Concomitant]
     Active Substance: PREDNISOLONE
  11. LANTUS [Concomitant]
     Active Substance: INSULIN GLARGINE
  12. GLIMICRON (GLICLAZIDE) [Concomitant]
     Active Substance: GLICLAZIDE
  13. OPALMON (LIMAPROST ALFASEX) [Concomitant]
  14. HUMALOG MIX (INSULIN LISPRO, INSULIN LISPRO PROTAMINE SUSPENSION) [Concomitant]
  15. SENNOSIDE (SENNOSIDE A+B) [Concomitant]
  16. AZULFIDINE EN (SULFASALAZINE) [Concomitant]
  17. TAKEPRON (LANSOPRAZOLE) [Concomitant]
     Active Substance: LANSOPRAZOLE
  18. NEUMETHYCOLE (MECOBALAMIN) [Concomitant]
  19. BAYASPIRIN (ACETYLSALICYLIC ACID) [Concomitant]

REACTIONS (8)
  - Haemodialysis-induced symptom [None]
  - Blood pressure decreased [None]
  - C-reactive protein increased [None]
  - Dysbacteriosis [None]
  - White blood cell count increased [None]
  - Constipation [None]
  - Pyrexia [None]
  - Pain in extremity [None]

NARRATIVE: CASE EVENT DATE: 20140523
